FAERS Safety Report 14890424 (Version 1)
Quarter: 2018Q2

REPORT INFORMATION
  Report Type: Spontaneous
  Country: US (occurrence: US)
  Receive Date: 20180514
  Receipt Date: 20180514
  Transmission Date: 20180711
  Serious: Yes (Life-Threatening, Hospitalization)
  Sender: FDA-Public Use
  Company Number: US-ROCHE-2122305

PATIENT
  Age: 61 Year
  Sex: Male
  Weight: 75 kg

DRUGS (15)
  1. NITROGLYCERIN. [Concomitant]
     Active Substance: NITROGLYCERIN
     Route: 065
     Dates: start: 2000
  2. FUROSEMIDE. [Concomitant]
     Active Substance: FUROSEMIDE
     Route: 065
     Dates: start: 1990
  3. INSPRA (UNITED STATES) [Concomitant]
     Route: 065
     Dates: start: 1990
  4. ZANAFLEX [Concomitant]
     Active Substance: TIZANIDINE HYDROCHLORIDE
     Route: 065
     Dates: start: 2015
  5. AMLODIPINE [Concomitant]
     Active Substance: AMLODIPINE BESYLATE
     Route: 065
     Dates: start: 1990
  6. ASPIRIN. [Concomitant]
     Active Substance: ASPIRIN
     Route: 065
     Dates: start: 1995
  7. VANCOMYCIN [Concomitant]
     Active Substance: VANCOMYCIN
     Route: 065
     Dates: start: 20180312, end: 20180331
  8. MAXIPIME [Concomitant]
     Active Substance: CEFEPIME HYDROCHLORIDE
     Route: 065
     Dates: start: 20180312, end: 20180331
  9. ZOSYN [Concomitant]
     Active Substance: PIPERACILLIN SODIUM\TAZOBACTAM SODIUM
  10. CLONAZEPAM. [Suspect]
     Active Substance: CLONAZEPAM
     Indication: ANXIETY DISORDER
     Route: 050
     Dates: start: 2004
  11. PANTOPRAZOLE [Concomitant]
     Active Substance: PANTOPRAZOLE
     Route: 065
     Dates: start: 1990
  12. GABAPENTIN. [Concomitant]
     Active Substance: GABAPENTIN
     Route: 065
     Dates: start: 2015
  13. OXYCODONE [Suspect]
     Active Substance: OXYCODONE
     Indication: BACK PAIN
     Route: 048
     Dates: start: 2015
  14. METOPROLOL. [Concomitant]
     Active Substance: METOPROLOL
     Route: 065
  15. ATORVASTATIN [Concomitant]
     Active Substance: ATORVASTATIN
     Route: 065
     Dates: start: 1988

REACTIONS (4)
  - Encephalopathy [Recovered/Resolved]
  - Pneumonia [Recovered/Resolved]
  - Sepsis [Recovered/Resolved]
  - Respiratory failure [Recovered/Resolved]

NARRATIVE: CASE EVENT DATE: 20180415
